FAERS Safety Report 22052180 (Version 3)
Quarter: 2023Q1

REPORT INFORMATION
  Report Type: Spontaneous
  Country: JP (occurrence: JP)
  Receive Date: 20230302
  Receipt Date: 20230331
  Transmission Date: 20230418
  Serious: Yes (Hospitalization, Other)
  Sender: FDA-Public Use
  Company Number: JP-TAKEDA-2023TJP001363

PATIENT
  Age: 7 Decade
  Sex: Female

DRUGS (3)
  1. ALUNBRIG [Suspect]
     Active Substance: BRIGATINIB
     Indication: Non-small cell lung cancer
     Dosage: 90 MILLIGRAM, QD
     Route: 048
     Dates: start: 20230110
  2. ALUNBRIG [Suspect]
     Active Substance: BRIGATINIB
     Dosage: 180 MILLIGRAM
     Route: 048
     Dates: start: 20230130, end: 20230228
  3. IGURATIMOD [Suspect]
     Active Substance: IGURATIMOD
     Indication: Rheumatic disorder
     Dosage: UNK
     Route: 065

REACTIONS (6)
  - Non-small cell lung cancer [Unknown]
  - Pyrexia [Unknown]
  - Rash [Unknown]
  - Serum ferritin increased [Recovered/Resolved]
  - Pyrexia [Recovered/Resolved]
  - Diarrhoea [Recovering/Resolving]

NARRATIVE: CASE EVENT DATE: 20230117
